FAERS Safety Report 9760438 (Version 1)
Quarter: 2013Q4

REPORT INFORMATION
  Report Type: Spontaneous
  Country: US (occurrence: US)
  Receive Date: 20131216
  Receipt Date: 20131216
  Transmission Date: 20140711
  Serious: Yes (Other)
  Sender: FDA-Public Use
  Company Number: US-BAYER-2013-150084

PATIENT
  Age: 43 Year
  Sex: Male

DRUGS (8)
  1. CIPROFLOXACIN [Suspect]
     Indication: Q FEVER
     Dosage: 750 MG, BID
  2. HYDROXYCHLOROQUINE [Interacting]
     Indication: Q FEVER
     Dosage: DAILY DOSE 300 MG
  3. HYDROXYCHLOROQUINE [Interacting]
     Indication: Q FEVER
     Dosage: 200 MG, BID
  4. DOXYCYCLINE [Concomitant]
     Indication: Q FEVER
     Dosage: 100 MG, BID
  5. DOXYCYCLINE [Concomitant]
     Indication: Q FEVER
     Dosage: 100 MG, BID
  6. DOXYCYCLINE [Concomitant]
     Indication: Q FEVER
  7. DOXYCYCLINE [Concomitant]
     Indication: Q FEVER
  8. RIFAMPIN [Concomitant]
     Indication: Q FEVER
     Dosage: DAILY DOSE 600 MG

REACTIONS (2)
  - Psychotic disorder [Recovered/Resolved]
  - Drug interaction [None]
